FAERS Safety Report 24393059 (Version 1)
Quarter: 2024Q4

REPORT INFORMATION
  Report Type: Spontaneous
  Country: US (occurrence: None)
  Receive Date: 20241003
  Receipt Date: 20241003
  Transmission Date: 20250115
  Serious: No
  Sender: Public
  Company Number: None

PATIENT
  Age: 7 Year
  Sex: Female
  Weight: 18 kg

DRUGS (2)
  1. MIRALAX [Suspect]
     Active Substance: POLYETHYLENE GLYCOL 3350
     Indication: Constipation
     Dosage: OTHER QUANTITY : 4 TEASPOON(S);?
     Route: 048
     Dates: start: 20240915, end: 20240928
  2. Multivitamin-smarty pants [Concomitant]

REACTIONS (7)
  - Anxiety [None]
  - Panic attack [None]
  - Paranoia [None]
  - Dyspnoea [None]
  - Muscle twitching [None]
  - Tic [None]
  - Gastrointestinal sounds abnormal [None]

NARRATIVE: CASE EVENT DATE: 20240921
